FAERS Safety Report 4544691-3 (Version None)
Quarter: 2004Q4

REPORT INFORMATION
  Report Type: 
  Country: None (occurrence: None)
  Receive Date: 20041230
  Receipt Date: 20041224
  Transmission Date: 20050328
  Serious: Yes (Hospitalization)
  Sender: FDA-Public Use
  Company Number: 2004-12-1232

PATIENT
  Age: 62 Year
  Sex: Female
  Weight: 50 kg

DRUGS (4)
  1. PEG-INTRON [Suspect]
     Indication: HEPATITIS C
     Dosage: 80-40 MCG QW* SUBCUTANEOUS
     Route: 058
     Dates: start: 20041209, end: 20041222
  2. PEG-INTRON [Suspect]
     Indication: HEPATITIS C
     Dosage: 80-40 MCG QW* SUBCUTANEOUS
     Route: 058
     Dates: start: 20041209, end: 20041222
  3. PEG-INTRON [Suspect]
     Indication: HEPATITIS C
     Dosage: 80-40 MCG QW* SUBCUTANEOUS
     Route: 058
     Dates: start: 20041223, end: 20041223
  4. PEG-INTRON [Suspect]

REACTIONS (2)
  - DIZZINESS [None]
  - VESTIBULAR DISORDER [None]
